FAERS Safety Report 7977658-3 (Version None)
Quarter: 2011Q4

REPORT INFORMATION
  Report Type: 
  Country: None (occurrence: None)
  Receive Date: 20111214
  Receipt Date: 20111123
  Transmission Date: 20120403
  Serious: No
  Sender: FDA-Public Use
  Company Number: US-AMGEN-USASP2011044804

PATIENT
  Age: 35 Year
  Sex: Female

DRUGS (16)
  1. CLEOCIN                            /00166002/ [Concomitant]
  2. FEXOFENADINE [Concomitant]
  3. IMIPRAMINE [Concomitant]
  4. PROPRANOLOL [Concomitant]
  5. METHADONE HCL [Concomitant]
  6. NORCO [Concomitant]
  7. VITAMIN D [Concomitant]
  8. CHANTIX [Concomitant]
  9. FOLIC ACID [Concomitant]
  10. CYMBALTA [Concomitant]
  11. METHOTREXATE [Concomitant]
     Dosage: 5 MG, UNK
  12. SIMVASTATIN [Concomitant]
  13. CLONAZEPAM [Concomitant]
  14. HYDROCHLOROTHIAZIDE [Concomitant]
  15. ENBREL [Suspect]
     Indication: RHEUMATOID ARTHRITIS
     Dosage: 50 MG, QWK
     Dates: start: 20090916
  16. PROTONIX [Concomitant]

REACTIONS (1)
  - HEADACHE [None]
